FAERS Safety Report 24675028 (Version 2)
Quarter: 2024Q4

REPORT INFORMATION
  Report Type: Spontaneous
  Country: AT (occurrence: AT)
  Receive Date: 20241128
  Receipt Date: 20241201
  Transmission Date: 20250114
  Serious: Yes (Other)
  Sender: BRISTOL-MYERS SQUIBB COMPANY
  Company Number: AT-IPSEN Group, Research and Development-2024-23804

PATIENT
  Age: 57 Year
  Sex: Male

DRUGS (2)
  1. NIVOLUMAB [Suspect]
     Active Substance: NIVOLUMAB
     Indication: Metastatic renal cell carcinoma
     Dosage: UNK
     Dates: start: 202303
  2. CABOMETYX [Suspect]
     Active Substance: CABOZANTINIB S-MALATE
     Indication: Metastatic renal cell carcinoma
     Dosage: UNK
     Dates: start: 202303

REACTIONS (5)
  - Ascites [Unknown]
  - Cardiac arrest [Unknown]
  - Syncope [Unknown]
  - Acute kidney injury [Unknown]
  - Malignant neoplasm progression [Unknown]

NARRATIVE: CASE EVENT DATE: 20240101
